FAERS Safety Report 8517165-2 (Version None)
Quarter: 2012Q2

REPORT INFORMATION
  Report Type: 
  Country: None (occurrence: None)
  Receive Date: 20120406
  Receipt Date: 20101020
  Transmission Date: 20120825
  Serious: Yes (Other)
  Sender: FDA-Public Use
  Company Number: PHHY2010US71095

PATIENT

DRUGS (1)
  1. TASIGNA [Suspect]
     Dosage: 150 MG

REACTIONS (1)
  - PALPITATIONS [None]
